FAERS Safety Report 21209171 (Version 5)
Quarter: 2022Q3

REPORT INFORMATION
  Report Type: Spontaneous
  Country: CN (occurrence: None)
  Receive Date: 20220813
  Receipt Date: 20220905
  Transmission Date: 20221026
  Serious: Yes (Life-Threatening, Hospitalization, Other)
  Sender: FDA-Public Use
  Company Number: 2022A279898

PATIENT
  Age: 61 Year
  Sex: Female
  Weight: 102 kg

DRUGS (6)
  1. IMFINZI [Suspect]
     Active Substance: DURVALUMAB
     Indication: Small cell lung cancer extensive stage
     Dosage: 1500MG/PERIOD; WITH A SPECIFICATION OF 500MG/10ML, ONCE EVERY 21 DAYS
     Route: 042
     Dates: start: 20211217, end: 20211217
  2. IMFINZI [Suspect]
     Active Substance: DURVALUMAB
     Indication: Small cell lung cancer extensive stage
     Dosage: 1500MG
     Route: 042
  3. ETOPOSIDE [Concomitant]
     Active Substance: ETOPOSIDE
     Indication: Small cell lung cancer
  4. CARBOPLATIN [Concomitant]
     Active Substance: CARBOPLATIN
     Indication: Small cell lung cancer
  5. CISPLATIN [Concomitant]
     Active Substance: CISPLATIN
     Indication: Small cell lung cancer
  6. WARFARIN [Concomitant]
     Active Substance: WARFARIN

REACTIONS (7)
  - Ketoacidosis [Recovered/Resolved]
  - Optic nerve injury [Recovering/Resolving]
  - Hypoaesthesia [Recovering/Resolving]
  - Pain in extremity [Recovering/Resolving]
  - Diabetes mellitus [Recovering/Resolving]
  - Eyelid disorder [Recovering/Resolving]
  - Visual impairment [Recovering/Resolving]
